FAERS Safety Report 8477035-5 (Version None)
Quarter: 2012Q2

REPORT INFORMATION
  Report Type: 
  Country: None (occurrence: None)
  Receive Date: 20120629
  Receipt Date: 20120621
  Transmission Date: 20120825
  Serious: No
  Sender: FDA-Public Use
  Company Number: US-B.I. PHARMACEUTICALS,INC./RIDGEFIELD-2012-BP-14214BP

PATIENT
  Sex: Female

DRUGS (8)
  1. PREMARIN [Concomitant]
     Indication: BLADDER DISORDER
  2. THIAZIDE [Concomitant]
     Indication: BLADDER DISORDER
  3. SYNTHROID [Concomitant]
     Indication: THYROID DISORDER
  4. FISH OIL [Concomitant]
  5. PRADAXA [Suspect]
     Indication: ATRIAL FIBRILLATION
     Dosage: 300 MG
     Route: 048
     Dates: start: 20120616
  6. VITAMIN D [Concomitant]
     Indication: SUPPLEMENTATION THERAPY
  7. ENABLENEX [Concomitant]
     Indication: HYPERTONIC BLADDER
  8. PRENATAL [Concomitant]
     Indication: SUPPLEMENTATION THERAPY

REACTIONS (2)
  - THROAT IRRITATION [None]
  - EATING DISORDER [None]
